FAERS Safety Report 21465999 (Version 1)
Quarter: 2022Q4

REPORT INFORMATION
  Report Type: Spontaneous
  Country: FR (occurrence: FR)
  Receive Date: 20221017
  Receipt Date: 20221017
  Transmission Date: 20230112
  Serious: Yes (Hospitalization)
  Sender: FDA-Public Use
  Company Number: None

PATIENT
  Age: 63 Year
  Sex: Male

DRUGS (1)
  1. TERBINAFINE [Suspect]
     Active Substance: TERBINAFINE
     Indication: Onychomycosis
     Dosage: NOT SPECIFIED
     Route: 048
     Dates: start: 20220328, end: 20220425

REACTIONS (4)
  - Hyperaesthesia [Recovering/Resolving]
  - General physical health deterioration [Recovering/Resolving]
  - Small fibre neuropathy [Recovering/Resolving]
  - Influenza like illness [Recovering/Resolving]

NARRATIVE: CASE EVENT DATE: 20220421
